FAERS Safety Report 8297967-0 (Version None)
Quarter: 2012Q2

REPORT INFORMATION
  Report Type: 
  Country: None (occurrence: None)
  Receive Date: 20120419
  Receipt Date: 20120413
  Transmission Date: 20120825
  Serious: Yes (Disabling)
  Sender: FDA-Public Use
  Company Number: FI-PFIZER INC-2012092155

PATIENT
  Age: 56 Year
  Sex: Male

DRUGS (6)
  1. TREXAN (METHOTREXATE) [Concomitant]
     Indication: RHEUMATOID ARTHRITIS
     Dosage: 10 MG, WEEKLY
     Route: 048
     Dates: start: 20111125
  2. DIFORMIN RETARD [Concomitant]
     Indication: DIABETES MELLITUS
     Dosage: 500 MG, 1X/DAY
     Route: 048
  3. SULFASALAZINE [Suspect]
     Indication: RHEUMATOID ARTHRITIS
     Dosage: 500 MG, 1X/DAY
     Route: 048
     Dates: start: 20120101, end: 20120410
  4. EXFORGE [Concomitant]
     Indication: HYPERTENSION
     Dosage: 5MG/160MG ONCE DAILY
     Route: 048
  5. OXIKLORIN [Concomitant]
     Indication: RHEUMATOID ARTHRITIS
     Dosage: 300 MG, 1X/DAY
     Route: 048
     Dates: start: 20111125
  6. XATRAL - SLOW RELEASE [Concomitant]
     Indication: BENIGN PROSTATIC HYPERPLASIA
     Dosage: 10 MG, 1X/DAY
     Route: 048

REACTIONS (1)
  - CARPAL TUNNEL SYNDROME [None]
